FAERS Safety Report 7693813-4 (Version None)
Quarter: 2011Q3

REPORT INFORMATION
  Report Type: 
  Country: None (occurrence: None)
  Receive Date: 20110819
  Receipt Date: 20110523
  Transmission Date: 20111222
  Serious: No
  Sender: FDA-Public Use
  Company Number: US-ALLERGAN-1107068US

PATIENT
  Age: 77 Year
  Sex: Female

DRUGS (3)
  1. LASTACAFT [Suspect]
     Indication: EYE INFECTION
     Dosage: 1 GTT, BID
     Route: 047
  2. LASTACAFT [Suspect]
     Indication: CATARACT OPERATION
  3. SOOTHE [Concomitant]
     Indication: DRY EYE

REACTIONS (2)
  - EYE IRRITATION [None]
  - INAPPROPRIATE SCHEDULE OF DRUG ADMINISTRATION [None]
